FAERS Safety Report 26086671 (Version 1)
Quarter: 2025Q4

REPORT INFORMATION
  Report Type: Spontaneous
  Country: GB (occurrence: GB)
  Receive Date: 20251125
  Receipt Date: 20251125
  Transmission Date: 20260117
  Serious: Yes (Hospitalization)
  Sender: ACCORD
  Company Number: GB-Accord-514408

PATIENT
  Age: 62 Year
  Sex: Female

DRUGS (10)
  1. DOCETAXEL [Suspect]
     Active Substance: DOCETAXEL
     Indication: HER2 positive breast cancer
     Dosage: 75 MG/M2 GIVEN AS STANDARD LOADING DOSE
     Dates: start: 20250521, end: 2025
  2. PERTUZUMAB\TRASTUZUMAB [Suspect]
     Active Substance: PERTUZUMAB\TRASTUZUMAB
     Indication: HER2 positive breast cancer
     Dosage: STANDARD LOADING DOSE FOR CYCLE 1 AS PER HOSPITAL PROTOCOL WITH 1.92 M2 BODY SURFACE AREA
     Dates: start: 20250521, end: 2025
  3. DOCETAXEL [Suspect]
     Active Substance: DOCETAXEL
     Indication: HER2 positive breast cancer
     Dosage: 100MG/M2 GIVEN AS STANDARD DOSE FOR PATIENTS
     Dates: start: 20250710, end: 2025
  4. DOCETAXEL [Suspect]
     Active Substance: DOCETAXEL
     Indication: Metastases to bone
     Dosage: 100MG/M2 GIVEN AS STANDARD DOSE FOR PATIENTS
     Dates: start: 20250807, end: 2025
  5. DOCETAXEL [Suspect]
     Active Substance: DOCETAXEL
     Indication: Metastases to lung
     Dosage: 100MG/M2 GIVEN AS STANDARD DOSE FOR PATIENTS
     Dates: start: 20250828, end: 2025
  6. PERTUZUMAB\TRASTUZUMAB [Suspect]
     Active Substance: PERTUZUMAB\TRASTUZUMAB
     Indication: HER2 positive breast cancer
     Dosage: STANDARD LOADING DOSE FOR CYCLE 1 AS PER HOSPITAL PROTOCOL WITH 1.99 M2 BODY SURFACE AREA
     Dates: start: 20250611, end: 2025
  7. PERTUZUMAB\TRASTUZUMAB [Suspect]
     Active Substance: PERTUZUMAB\TRASTUZUMAB
     Indication: HER2 positive breast cancer
     Dosage: STANDARD LOADING DOSE FOR CYCLE 1 AS PER HOSPITAL PROTOCOL WITH 1.90 M2 BODY SURFACE AREA
     Dates: start: 20250710, end: 2025
  8. PERTUZUMAB\TRASTUZUMAB [Suspect]
     Active Substance: PERTUZUMAB\TRASTUZUMAB
     Indication: HER2 positive breast cancer
     Dosage: STANDARD LOADING DOSE FOR CYCLE 1 AS PER HOSPITAL PROTOCOL WITH 1.86 M2 BODY SURFACE AREA.
     Dates: start: 20250807, end: 2025
  9. PERTUZUMAB\TRASTUZUMAB [Suspect]
     Active Substance: PERTUZUMAB\TRASTUZUMAB
     Indication: HER2 positive breast cancer
     Dosage: STANDARD LOADING DOSE FOR CYCLE 1 AS PER HOSPITAL PROTOCOL WITH 1.83M2 BODY SURFACE AREA.
     Dates: start: 20250828, end: 2025
  10. DOCETAXEL [Suspect]
     Active Substance: DOCETAXEL
     Indication: HER2 positive breast cancer
     Dosage: 100MG/M2 GIVEN AS STANDARD DOSE FOR PATIENTS
     Dates: start: 20250611, end: 2025

REACTIONS (7)
  - Erythema multiforme [Unknown]
  - Hypoalbuminaemia [Unknown]
  - Condition aggravated [Unknown]
  - Malnutrition [Unknown]
  - Weight decreased [Unknown]
  - Decreased appetite [Unknown]
  - Mucosal inflammation [Unknown]

NARRATIVE: CASE EVENT DATE: 20250101
